FAERS Safety Report 9166430 (Version 3)
Quarter: 2013Q1

REPORT INFORMATION
  Report Type: Report from Study
  Country: CA (occurrence: CA)
  Receive Date: 20130315
  Receipt Date: 20130326
  Transmission Date: 20140127
  Serious: Yes (Death, Hospitalization, Other)
  Sender: FDA-Public Use
  Company Number: CA-ABBOTT-13P-028-1062207-00

PATIENT
  Age: 83 Year
  Sex: Male
  Weight: 88.08 kg

DRUGS (10)
  1. LUPRON DEPOT [Suspect]
     Indication: PROSTATE CANCER
     Route: 030
     Dates: start: 20110912
  2. MORPHINE SULFATE [Concomitant]
  3. ASPIRIN [Concomitant]
     Indication: PRODUCT USED FOR UNKNOWN INDICATION
     Route: 048
  4. NITROGLYCERINE [Concomitant]
     Indication: PRODUCT USED FOR UNKNOWN INDICATION
     Route: 062
  5. NITROGLYCERINE [Concomitant]
     Route: 060
  6. PLAVIX [Concomitant]
     Indication: PRODUCT USED FOR UNKNOWN INDICATION
     Route: 048
  7. TAMSULOSIN [Concomitant]
     Indication: PRODUCT USED FOR UNKNOWN INDICATION
  8. MICARDIS PLUS [Concomitant]
     Indication: PRODUCT USED FOR UNKNOWN INDICATION
     Dosage: 80/12.5 MG
  9. IRON [Concomitant]
     Indication: PRODUCT USED FOR UNKNOWN INDICATION
  10. CRESTOR [Concomitant]
     Indication: PRODUCT USED FOR UNKNOWN INDICATION

REACTIONS (27)
  - Prostate cancer metastatic [Fatal]
  - Coronary artery disease [Unknown]
  - Dehydration [Recovered/Resolved]
  - Nausea [Unknown]
  - Decreased appetite [Unknown]
  - Abdominal distension [Recovering/Resolving]
  - Large intestinal obstruction [Recovering/Resolving]
  - Cholelithiasis [Unknown]
  - Gastric ulcer [Unknown]
  - Pleural fibrosis [Unknown]
  - Pleural effusion [Unknown]
  - Pyuria [Unknown]
  - Oedema peripheral [Unknown]
  - Decubitus ulcer [Unknown]
  - Pulmonary oedema [Unknown]
  - Chest pain [Unknown]
  - Epigastric discomfort [Unknown]
  - Cardiac failure congestive [Unknown]
  - Cardiomegaly [Unknown]
  - Myocardial infarction [Unknown]
  - Pain [Unknown]
  - Dyspnoea [Unknown]
  - Dehydration [Unknown]
  - Vomiting [Unknown]
  - Emphysema [Unknown]
  - Chest discomfort [Unknown]
  - Oropharyngeal discomfort [Unknown]
